FAERS Safety Report 4716228-7 (Version None)
Quarter: 2005Q2

REPORT INFORMATION
  Report Type: 
  Country: None (occurrence: None)
  Receive Date: 20050630
  Receipt Date: 20050310
  Transmission Date: 20051028
  Serious: Yes (Hospitalization)
  Sender: FDA-Public Use
  Company Number: USA050392862

PATIENT
  Age: 73 Year
  Sex: Female

DRUGS (10)
  1. HUMULIN R [Suspect]
     Indication: DIABETES MELLITUS
     Dosage: 27 U DAY
  2. HUMALOG [Suspect]
     Indication: DIABETES MELLITUS
     Dosage: 70 U/2 DAY
     Dates: end: 20050301
  3. HUMALOG [Suspect]
     Indication: DIABETES MELLITUS
     Dosage: 28 U DAY
     Dates: start: 20050306
  4. TORESEMIDE [Concomitant]
  5. TOPROL-XL [Concomitant]
  6. AMILORIDE HCL [Concomitant]
  7. LIPITOR [Concomitant]
  8. ALLOPURINOL [Concomitant]
  9. ZAROXOLYN [Concomitant]
  10. PULMICORT [Concomitant]

REACTIONS (3)
  - ASTHENIA [None]
  - BLOOD GLUCOSE INCREASED [None]
  - FATIGUE [None]
